FAERS Safety Report 5121886-1 (Version None)
Quarter: 2006Q4

REPORT INFORMATION
  Report Type: 
  Country: None (occurrence: None)
  Receive Date: 20061006
  Receipt Date: 20061002
  Transmission Date: 20070319
  Serious: Yes (Other)
  Sender: FDA-Public Use
  Company Number: GB-MERCK-0610GBR00008

PATIENT
  Age: 64 Year
  Sex: Male

DRUGS (7)
  1. ZETIA [Suspect]
     Indication: BLOOD CHOLESTEROL INCREASED
     Route: 048
  2. ZETIA [Suspect]
     Route: 048
  3. ASPIRIN [Concomitant]
     Route: 065
     Dates: start: 20060526
  4. DIHYDROCODEINE BITARTRATE INJ [Concomitant]
     Route: 048
     Dates: start: 20060828
  5. ACETAMINOPHEN [Concomitant]
     Route: 065
  6. RAMIPRIL [Concomitant]
     Route: 065
     Dates: start: 20040414
  7. RANITIDINE [Concomitant]
     Route: 065
     Dates: start: 20050729

REACTIONS (2)
  - CHEST EXPANSION DECREASED [None]
  - DYSPNOEA [None]
